FAERS Safety Report 8186384-X (Version None)
Quarter: 2012Q1

REPORT INFORMATION
  Report Type: 
  Country: None (occurrence: None)
  Receive Date: 20120306
  Receipt Date: 20120227
  Transmission Date: 20120608
  Serious: Yes (Hospitalization)
  Sender: FDA-Public Use
  Company Number: US-BAYER-2011-085342

PATIENT
  Age: 28 Year
  Sex: Female
  Weight: 113 kg

DRUGS (11)
  1. IBUPROFEN (ADVIL) [Concomitant]
     Dosage: UNK
     Dates: start: 19990101
  2. PROTONIX [Concomitant]
     Dosage: 40 MG, QD
  3. ZYRTEC [Concomitant]
     Indication: MULTIPLE ALLERGIES
     Dosage: UNK
  4. WELLBUTRIN [Concomitant]
     Dosage: 300 MG, QD
  5. ADVAIR DISKUS 100/50 [Concomitant]
     Indication: ASTHMA
     Dosage: UNK
     Dates: start: 19990101
  6. YASMIN [Suspect]
     Indication: CONTRACEPTION
     Dosage: UNK
     Dates: start: 20000101, end: 20070101
  7. SYNTHROID [Concomitant]
     Indication: HYPOTHYROIDISM
     Dosage: UNK
     Dates: start: 19990101
  8. SINGULAIR [Concomitant]
     Indication: ASTHMA
     Dosage: UNK
     Dates: start: 19990101
  9. ALBUTEROL [Concomitant]
     Indication: ASTHMA
     Dosage: UNK
     Dates: start: 19990101
  10. NAPROXEN (ALEVE) [Concomitant]
     Dosage: UNK
     Dates: start: 19990101
  11. RHINOCORT [Concomitant]

REACTIONS (6)
  - BILE DUCT STONE [None]
  - INJURY [None]
  - CHOLECYSTITIS ACUTE [None]
  - PAIN [None]
  - FEAR [None]
  - CHOLELITHIASIS [None]
